FAERS Safety Report 8814121 (Version 1)
Quarter: 2012Q4

REPORT INFORMATION
  Report Type: Spontaneous
  Country: US (occurrence: None)
  Receive Date: 20120925
  Receipt Date: 20120925
  Transmission Date: 20130627
  Serious: Yes (Other)
  Sender: FDA-Public Use
  Company Number: FK201202718

PATIENT
  Age: 62 Year
  Sex: Male

DRUGS (4)
  1. LIDOCAINE [Suspect]
     Indication: EPIDURAL ANAESTHESIA
  2. LIDOCAINE / EPINEPHRINE [Suspect]
     Indication: EPIDURAL ANAESTHESIA
  3. EPINEPHRINE\LIDOCAINE [Suspect]
     Indication: EPIDURAL ANAESTHESIA
  4. EPHEDRINE [Suspect]
     Indication: ATRIAL FIBRILLATION

REACTIONS (2)
  - Bradycardia [None]
  - Atrial fibrillation [None]
